FAERS Safety Report 15119272 (Version 1)
Quarter: 2018Q3

REPORT INFORMATION
  Report Type: Report from Study
  Country: IT (occurrence: IT)
  Receive Date: 20180709
  Receipt Date: 20180709
  Transmission Date: 20181010
  Serious: Yes (Hospitalization)
  Sender: FDA-Public Use
  Company Number: IT-TEVA-2018-IT-921486

PATIENT
  Age: 51 Year
  Sex: Female

DRUGS (4)
  1. LIMICAN 50 MG/2 ML SOLUZIONE INIETTABILE [Concomitant]
     Route: 065
  2. DOXORUBICIN HYDROCHLORIDE. [Suspect]
     Active Substance: DOXORUBICIN HYDROCHLORIDE
     Indication: BREAST CANCER
     Route: 040
     Dates: start: 20160213, end: 20160213
  3. CYCLOPHOSPHAMIDE. [Suspect]
     Active Substance: CYCLOPHOSPHAMIDE
     Indication: BREAST CANCER
     Route: 042
     Dates: start: 20160213, end: 20180213
  4. DEXAMETHASONE. [Concomitant]
     Active Substance: DEXAMETHASONE
     Route: 065

REACTIONS (4)
  - Sepsis [Recovering/Resolving]
  - Febrile neutropenia [Recovering/Resolving]
  - Lymphangitis [Recovering/Resolving]
  - Systemic inflammatory response syndrome [Recovering/Resolving]

NARRATIVE: CASE EVENT DATE: 20180226
